FAERS Safety Report 21226799 (Version 1)
Quarter: 2022Q3

REPORT INFORMATION
  Report Type: Spontaneous
  Country: GB (occurrence: GB)
  Receive Date: 20220818
  Receipt Date: 20220818
  Transmission Date: 20221027
  Serious: Yes (Other)
  Sender: FDA-Public Use
  Company Number: GB-CELLTRION INC.-2022GB013265

PATIENT

DRUGS (2)
  1. INFLIXIMAB [Suspect]
     Active Substance: INFLIXIMAB
     Indication: Crohn^s disease
     Dosage: 120 MG PRE-FILLED PEN
     Route: 058
     Dates: start: 202112
  2. INFLIXIMAB [Suspect]
     Active Substance: INFLIXIMAB
     Dosage: 120 MG PRE-FILLED PEN
     Route: 058
     Dates: start: 202112

REACTIONS (4)
  - Vascular device infection [Unknown]
  - Infection [Unknown]
  - Intentional dose omission [Unknown]
  - Therapy interrupted [Unknown]
